FAERS Safety Report 5425501-9 (Version None)
Quarter: 2007Q3

REPORT INFORMATION
  Report Type: 
  Country: None (occurrence: None)
  Receive Date: 20070824
  Receipt Date: 20070815
  Transmission Date: 20080115
  Serious: Yes (Hospitalization, Other)
  Sender: FDA-Public Use
  Company Number: US-PFIZER INC-2007044501

PATIENT
  Sex: Female
  Weight: 56.7 kg

DRUGS (3)
  1. CELEBREX [Suspect]
     Indication: MYALGIA
  2. CELEBREX [Suspect]
     Indication: PAIN IN EXTREMITY
  3. CELEBREX [Suspect]
     Indication: ARTHRALGIA

REACTIONS (3)
  - CARDIOVASCULAR DISORDER [None]
  - MYOCARDIAL INFARCTION [None]
  - PHARYNGEAL DISORDER [None]
